FAERS Safety Report 6054492-5 (Version None)
Quarter: 2009Q1

REPORT INFORMATION
  Report Type: 
  Country: None (occurrence: None)
  Receive Date: 20090127
  Receipt Date: 20090117
  Transmission Date: 20090719
  Serious: Yes (Other)
  Sender: FDA-Public Use
  Company Number: PHHY2008CA33619

PATIENT
  Sex: Male

DRUGS (7)
  1. DIOVAN [Suspect]
     Indication: HYPERTENSION
     Dosage: 80 MG DAILY
     Route: 048
     Dates: start: 20080821, end: 20080822
  2. CALCIUM CHANNEL BLOCKERS [Concomitant]
  3. TYLENOL [Concomitant]
  4. VENTOLIN [Concomitant]
  5. ATROVENT [Concomitant]
  6. ALVESCO [Concomitant]
     Dosage: ONCE DAILY
  7. CRESTOR [Concomitant]
     Dosage: 10 G ONCE DAILY

REACTIONS (4)
  - CARDIAC FLUTTER [None]
  - CHEST PAIN [None]
  - DECREASED APPETITE [None]
  - HEADACHE [None]
